FAERS Safety Report 10587368 (Version 2)
Quarter: 2014Q4

REPORT INFORMATION
  Report Type: Spontaneous
  Country: AU (occurrence: AU)
  Receive Date: 20141117
  Receipt Date: 20141216
  Transmission Date: 20150529
  Serious: Yes (Other)
  Sender: FDA-Public Use
  Company Number: AU-SHIRE-AU201407751

PATIENT
  Age: 62 Year
  Sex: Female

DRUGS (1)
  1. MEZAVANT [Suspect]
     Active Substance: MESALAMINE
     Indication: PRODUCT USED FOR UNKNOWN INDICATION
     Dosage: 2.4 G, ONE DOSE
     Route: 048
     Dates: start: 20141020, end: 20141020

REACTIONS (7)
  - Nausea [Unknown]
  - Diarrhoea [Unknown]
  - Syncope [Unknown]
  - Malaise [Unknown]
  - Renal impairment [Unknown]
  - Blood test abnormal [Recovered/Resolved]
  - Vomiting [Unknown]

NARRATIVE: CASE EVENT DATE: 201410
